FAERS Safety Report 24108061 (Version 1)
Quarter: 2024Q3

REPORT INFORMATION
  Report Type: Spontaneous
  Country: GB (occurrence: GB)
  Receive Date: 20240718
  Receipt Date: 20240718
  Transmission Date: 20241017
  Serious: Yes (Other)
  Sender: AUROBINDO
  Company Number: GB-MHRA-TPP58375521C20988500YC1719398389246

PATIENT
  Age: 7 Year
  Sex: Male
  Weight: 24 kg

DRUGS (9)
  1. PIPERACILLIN AND TAZOBACTAM [Suspect]
     Active Substance: PIPERACILLIN SODIUM\TAZOBACTAM SODIUM
     Indication: Ill-defined disorder
     Dosage: UNK
     Route: 065
     Dates: start: 20240626
  2. ASPIRIN [Concomitant]
     Active Substance: ASPIRIN
     Indication: Ill-defined disorder
     Dosage: 1 DOSAGE FORM, ONCE A DAY(DISSOLVE ONE TABLET)
     Route: 065
     Dates: start: 20230412
  3. CHLORAPREP [Concomitant]
     Active Substance: CHLORHEXIDINE GLUCONATE\ISOPROPYL ALCOHOL
     Indication: Ill-defined disorder
     Dosage: UNK(USE AS DIRECTED)
     Route: 065
     Dates: start: 20240416
  4. FOLIC ACID [Concomitant]
     Active Substance: FOLIC ACID
     Indication: Ill-defined disorder
     Dosage: 10 MILLILITER, ONCE A DAY(2X5ML SPOON ONCE DAILY)
     Route: 065
     Dates: start: 20221024
  5. LANSOPRAZOLE [Concomitant]
     Active Substance: LANSOPRAZOLE
     Indication: Ill-defined disorder
     Dosage: 1 DOSAGE FORM, ONCE A DAY(WHILST ON ASPIRIN)
     Route: 065
     Dates: start: 20230411
  6. PENICILLIN V [Concomitant]
     Active Substance: PENICILLIN V
     Indication: Ill-defined disorder
     Dosage: 5 MILLILITER(5 MILLILITER(1X5ML SPOON TWICE DAILY (PROPHYLAXIS)))
     Route: 065
     Dates: start: 20221024
  7. SODIUM CHLORIDE [Concomitant]
     Active Substance: SODIUM CHLORIDE
     Indication: Ill-defined disorder
     Dosage: UNK(USE AS DIRECTED)
     Route: 065
     Dates: start: 20240403
  8. DEVICE\POLYURETHANE [Concomitant]
     Active Substance: DEVICE\POLYURETHANE
     Indication: Ill-defined disorder
     Dosage: UNK(USE AS DIRECTED)
     Route: 065
     Dates: start: 20240403, end: 20240501
  9. CLEARPORE [Concomitant]
     Indication: Ill-defined disorder
     Dosage: USE AS DIRECTED
     Dates: start: 20240416

REACTIONS (3)
  - Chest discomfort [Unknown]
  - Wheezing [Recovered/Resolved]
  - Cough [Recovered/Resolved]
